FAERS Safety Report 18026793 (Version 1)
Quarter: 2020Q3

REPORT INFORMATION
  Report Type: Spontaneous
  Country: US (occurrence: US)
  Receive Date: 20200716
  Receipt Date: 20200716
  Transmission Date: 20201103
  Serious: No
  Sender: FDA-Public Use
  Company Number: US-ASTRAZENECA-2020SE87402

PATIENT
  Sex: Male

DRUGS (1)
  1. BYDUREON BCISE [Suspect]
     Active Substance: EXENATIDE
     Dosage: ONCE A WEEK
     Route: 065

REACTIONS (5)
  - Device issue [Unknown]
  - Injection site mass [Unknown]
  - Injection site haemorrhage [Unknown]
  - Injection site urticaria [Recovering/Resolving]
  - Device leakage [Unknown]
